FAERS Safety Report 23896872 (Version 2)
Quarter: 2024Q2

REPORT INFORMATION
  Report Type: Spontaneous
  Country: US (occurrence: US)
  Receive Date: 20240524
  Receipt Date: 20240606
  Transmission Date: 20240716
  Serious: Yes (Hospitalization)
  Sender: FDA-Public Use
  Company Number: US-PARATEK PHARMACEUTICALS, INC.-2024PTK00408

PATIENT
  Age: 72 Year
  Sex: Male

DRUGS (2)
  1. NUZYRA [Suspect]
     Active Substance: OMADACYCLINE
     Indication: Skin bacterial infection
     Dosage: 450 MG, 1X/DAY AT BEDTIME
     Route: 048
     Dates: start: 20240513, end: 20240514
  2. NUZYRA [Suspect]
     Active Substance: OMADACYCLINE
     Indication: Evidence based treatment
     Dosage: 300 MG, 1X/DAY AT BEDTIME
     Route: 048
     Dates: start: 20240515, end: 20240516

REACTIONS (3)
  - Skin bacterial infection [Recovered/Resolved]
  - Drug ineffective [Recovered/Resolved]
  - Treatment failure [Recovered/Resolved]

NARRATIVE: CASE EVENT DATE: 20240501
